FAERS Safety Report 8607934-2 (Version None)
Quarter: 2012Q3

REPORT INFORMATION
  Report Type: 
  Country: None (occurrence: None)
  Receive Date: 20120821
  Receipt Date: 20120813
  Transmission Date: 20120928
  Serious: Yes (Hospitalization)
  Sender: FDA-Public Use
  Company Number: DE-ASTRAZENECA-2012SE56972

PATIENT
  Age: 85 Year
  Sex: Male

DRUGS (3)
  1. PROPOFOL [Suspect]
     Indication: CARDIOVERSION
     Route: 042
     Dates: start: 20120209, end: 20120209
  2. AMIODARONE HCL [Suspect]
     Indication: ATRIAL FIBRILLATION
     Route: 042
     Dates: start: 20120206, end: 20120210
  3. CEFTRIAXON [Suspect]
     Indication: CHRONIC OBSTRUCTIVE PULMONARY DISEASE
     Route: 042
     Dates: start: 20120203, end: 20120208

REACTIONS (2)
  - THROMBOCYTOPENIA [None]
  - LEUKOPENIA [None]
